FAERS Safety Report 19977817 (Version 1)
Quarter: 2021Q4

REPORT INFORMATION
  Report Type: Spontaneous
  Country: US (occurrence: US)
  Receive Date: 20211020
  Receipt Date: 20211020
  Transmission Date: 20220303
  Serious: Yes (unspecified)
  Sender: FDA-Public Use
  Company Number: None

PATIENT
  Age: 27 Year
  Sex: Female
  Weight: 67.5 kg

DRUGS (1)
  1. REGEN-COV [Suspect]
     Active Substance: CASIRIVIMAB\IMDEVIMAB
     Indication: COVID-19
     Dosage: ?          OTHER FREQUENCY:ONE TIME;
     Route: 041

REACTIONS (7)
  - Chest discomfort [None]
  - Dizziness [None]
  - Abdominal discomfort [None]
  - Throat tightness [None]
  - Hypoaesthesia [None]
  - Feeling hot [None]
  - Heart rate increased [None]

NARRATIVE: CASE EVENT DATE: 20211015
